FAERS Safety Report 26207219 (Version 1)
Quarter: 2025Q4

REPORT INFORMATION
  Report Type: Spontaneous
  Country: EU (occurrence: EU)
  Receive Date: 20251229
  Receipt Date: 20251229
  Transmission Date: 20260119
  Serious: Yes (Life-Threatening, Hospitalization, Disabling, Other)
  Sender: AUROBINDO
  Company Number: EU-AEMPS-1799744

PATIENT
  Age: 4 Year
  Sex: Male
  Weight: 18 kg

DRUGS (1)
  1. ACETAMINOPHEN [Suspect]
     Active Substance: ACETAMINOPHEN
     Indication: Pyrexia
     Dosage: 1 GRAM, 3 TIMES A DAY (ERROR DE ADMINISTRACI?N. 1 GRAMO CADA 8 HORAS 3 DIAS)
     Route: 061
     Dates: start: 20251201, end: 20251203

REACTIONS (2)
  - Hepatitis fulminant [Recovering/Resolving]
  - Accidental overdose [Recovered/Resolved with Sequelae]

NARRATIVE: CASE EVENT DATE: 20251203
